FAERS Safety Report 8593180-8 (Version None)
Quarter: 2012Q3

REPORT INFORMATION
  Report Type: 
  Country: None (occurrence: None)
  Receive Date: 20120814
  Receipt Date: 20120806
  Transmission Date: 20120928
  Serious: Yes (Other)
  Sender: FDA-Public Use
  Company Number: US-PFIZER INC-2012186981

PATIENT
  Age: 82 Year
  Sex: Female

DRUGS (1)
  1. LATANOPROST [Suspect]
     Dosage: 1 DROP IN EACH EYE AT BEDTIME
     Route: 047

REACTIONS (5)
  - EYE IRRITATION [None]
  - WALKING AID USER [None]
  - VISUAL IMPAIRMENT [None]
  - PRODUCT TAMPERING [None]
  - HEADACHE [None]
